FAERS Safety Report 21118029 (Version 1)
Quarter: 2022Q3

REPORT INFORMATION
  Report Type: Other
  Country: US (occurrence: None)
  Receive Date: 20220722
  Receipt Date: 20220722
  Transmission Date: 20221027
  Serious: Yes (Death)
  Sender: FDA-Public Use
  Company Number: US-ROCHE-3119602

PATIENT
  Sex: Female

DRUGS (2)
  1. ACTEMRA [Suspect]
     Active Substance: TOCILIZUMAB
     Indication: Rheumatoid arthritis
     Dosage: LAST DOSE: 10/FEB/2021
     Route: 058
  2. TREXALL [Concomitant]
     Active Substance: METHOTREXATE SODIUM

REACTIONS (1)
  - Respiratory failure [Fatal]
